FAERS Safety Report 6326170-6 (Version None)
Quarter: 2009Q3

REPORT INFORMATION
  Report Type: 
  Country: None (occurrence: None)
  Receive Date: 20090824
  Receipt Date: 20090729
  Transmission Date: 20100115
  Serious: Yes (Hospitalization)
  Sender: FDA-Public Use
  Company Number: IT-PFIZER INC-2009243351

PATIENT
  Age: 68 Year

DRUGS (3)
  1. CARDURA [Suspect]
     Indication: HYPERTENSION
     Dosage: 1 UNIT TOTAL
     Route: 048
     Dates: start: 20090612, end: 20090612
  2. ZANEDIP [Concomitant]
     Indication: HYPERTENSION
     Dosage: 1 UNIT TOTAL
     Route: 048
     Dates: start: 20080601, end: 20090612
  3. ACETYLSALICYLATE LYSINE [Concomitant]
     Indication: PROPHYLAXIS
     Dosage: 1 UNIT
     Route: 048
     Dates: start: 20080601, end: 20090612

REACTIONS (3)
  - DRUG ADMINISTRATION ERROR [None]
  - HYPOTENSION [None]
  - SYNCOPE [None]
